FAERS Safety Report 11941452 (Version 2)
Quarter: 2016Q1

REPORT INFORMATION
  Report Type: Spontaneous
  Country: BR (occurrence: BR)
  Receive Date: 20160122
  Receipt Date: 20160129
  Transmission Date: 20160526
  Serious: Yes (Hospitalization, Other)
  Sender: FDA-Public Use
  Company Number: PHHY2015BR166585

PATIENT
  Sex: Female

DRUGS (1)
  1. VOLTAREN [Suspect]
     Active Substance: DICLOFENAC SODIUM
     Indication: BACK PAIN
     Dosage: WAS INJECTED TO THE PATIENT^S LEFT GLUTEUS, THROUGH LEFT BUTTOCK
     Route: 030
     Dates: start: 20140718

REACTIONS (34)
  - Joint abscess [Unknown]
  - Wound necrosis [Unknown]
  - Limb asymmetry [Unknown]
  - Pathogen resistance [Unknown]
  - Fear of death [Unknown]
  - Product quality issue [Unknown]
  - Pyrexia [Unknown]
  - Limb discomfort [Unknown]
  - Limb deformity [Unknown]
  - Bacterial infection [Unknown]
  - Oedema [Unknown]
  - Wound [Unknown]
  - Pain in extremity [Unknown]
  - Localised infection [Unknown]
  - Injury [Unknown]
  - Pain [Unknown]
  - Oedema peripheral [Unknown]
  - Hyperaemia [Unknown]
  - Emotional distress [Unknown]
  - Product contamination microbial [Unknown]
  - Chills [Unknown]
  - Muscle oedema [Unknown]
  - Paraesthesia [Unknown]
  - Mobility decreased [Unknown]
  - Cellulitis [Unknown]
  - Infection [Unknown]
  - Injection site pain [Unknown]
  - Skin necrosis [Unknown]
  - Abscess limb [Unknown]
  - Hyperhidrosis [Unknown]
  - Feeling hot [Unknown]
  - Necrotising fasciitis [Unknown]
  - Gait disturbance [Unknown]
  - Anxiety [Unknown]
